FAERS Safety Report 5738918-X (Version None)
Quarter: 2008Q2

REPORT INFORMATION
  Report Type: 
  Country: None (occurrence: None)
  Receive Date: 20080515
  Receipt Date: 20080505
  Transmission Date: 20081010
  Serious: Yes (Hospitalization)
  Sender: FDA-Public Use
  Company Number: US-ROCHE-562393

PATIENT
  Age: 56 Year
  Sex: Female

DRUGS (9)
  1. VALIUM [Suspect]
     Indication: SARCOIDOSIS
     Route: 065
     Dates: start: 19930101
  2. DIAZEPAM [Suspect]
     Indication: SARCOIDOSIS
     Dosage: RECEIVED DURING HOSPITALISATION.
     Route: 065
  3. ADVAIR DISKUS 100/50 [Concomitant]
  4. ADVAIR DISKUS 100/50 [Concomitant]
  5. MAXAIR [Concomitant]
  6. ALBUTEROL [Concomitant]
  7. LIPITOR [Concomitant]
  8. SINGULAIR [Concomitant]
  9. EPIPEN [Concomitant]

REACTIONS (1)
  - SARCOIDOSIS [None]
